FAERS Safety Report 15423255 (Version 1)
Quarter: 2018Q3

REPORT INFORMATION
  Report Type: Spontaneous
  Country: BR (occurrence: BR)
  Receive Date: 20180925
  Receipt Date: 20180925
  Transmission Date: 20181010
  Serious: Yes (Other)
  Sender: FDA-Public Use
  Company Number: BR-AMGEN-BRASP2018132646

PATIENT
  Age: 54 Year
  Sex: Female

DRUGS (1)
  1. ENBREL [Suspect]
     Active Substance: ETANERCEPT
     Indication: RHEUMATOID ARTHRITIS
     Dosage: 2 DF, WEEKLY
     Route: 065
     Dates: start: 2016, end: 201803

REACTIONS (5)
  - Zika virus infection [Unknown]
  - Synovial cyst [Unknown]
  - Dengue fever [Unknown]
  - Hypertension [Unknown]
  - Drug ineffective [Unknown]
